FAERS Safety Report 6536361-7 (Version None)
Quarter: 2010Q1

REPORT INFORMATION
  Report Type: 
  Country: None (occurrence: None)
  Receive Date: 20100113
  Receipt Date: 20091202
  Transmission Date: 20100710
  Serious: No
  Sender: FDA-Public Use
  Company Number: US-ALLERGAN-0916689US

PATIENT
  Sex: Female

DRUGS (2)
  1. LATISSE [Suspect]
     Indication: DRUG USE FOR UNKNOWN INDICATION
     Dosage: 1 GTT, UNKNOWN
     Route: 061
     Dates: end: 20091130
  2. CLINIQUE MEDICAL OPTIMIZING TREATMENT CREAM [Concomitant]
     Dosage: UNK

REACTIONS (2)
  - BLISTER [None]
  - ERYTHEMA [None]
